FAERS Safety Report 4674212-6 (Version None)
Quarter: 2005Q2

REPORT INFORMATION
  Report Type: 
  Country: None (occurrence: None)
  Receive Date: 20050524
  Receipt Date: 20050512
  Transmission Date: 20051028
  Serious: Yes (Other)
  Sender: FDA-Public Use
  Company Number: 2005018171

PATIENT
  Age: 70 Year
  Sex: Male

DRUGS (2)
  1. CELEBREX [Suspect]
     Indication: ARTHRITIS
     Dosage: 200 MG (1 IN 1 D)
     Dates: start: 20041120
  2. BEXTRA [Suspect]
     Indication: ARTHRITIS
     Dosage: 1 IN 1 D
     Dates: start: 20021213, end: 20041129

REACTIONS (8)
  - ABDOMINAL PAIN [None]
  - FACE INJURY [None]
  - FALL [None]
  - HEAD INJURY [None]
  - LOSS OF CONSCIOUSNESS [None]
  - MIGRAINE [None]
  - PHOTOPHOBIA [None]
  - TINNITUS [None]
